FAERS Safety Report 8287980-1 (Version None)
Quarter: 2012Q2

REPORT INFORMATION
  Report Type: 
  Country: None (occurrence: None)
  Receive Date: 20120411
  Receipt Date: 20120411
  Transmission Date: 20120825
  Serious: No
  Sender: FDA-Public Use
  Company Number: None

PATIENT
  Age: 52 Year
  Sex: Female
  Weight: 122.3 kg

DRUGS (1)
  1. LETROZOLE [Suspect]
     Indication: BREAST CANCER
     Dosage: LETROZOLE 2.5MG QD PO
     Route: 048
     Dates: start: 20120124, end: 20120402

REACTIONS (3)
  - BONE PAIN [None]
  - PRODUCT SUBSTITUTION ISSUE [None]
  - ARTHRALGIA [None]
